FAERS Safety Report 11782225 (Version 2)
Quarter: 2016Q1

REPORT INFORMATION
  Report Type: Report from Study
  Country: IT (occurrence: IT)
  Receive Date: 20151127
  Receipt Date: 20160308
  Transmission Date: 20160525
  Serious: Yes (Other)
  Sender: FDA-Public Use
  Company Number: IT-ROCHE-1667190

PATIENT

DRUGS (2)
  1. CAPECITABINE. [Suspect]
     Active Substance: CAPECITABINE
     Indication: COLORECTAL CANCER METASTATIC
     Dosage: CONTINUOUSLY
     Route: 065
  2. RABEPRAZOLE [Suspect]
     Active Substance: RABEPRAZOLE
     Indication: COLORECTAL CANCER METASTATIC
     Dosage: TWICE A DAY FOR 3 DAYS A WEEK
     Route: 065

REACTIONS (2)
  - Toxicity to various agents [Unknown]
  - Haematotoxicity [Unknown]
